FAERS Safety Report 5406157-8 (Version None)
Quarter: 2007Q3

REPORT INFORMATION
  Report Type: 
  Country: None (occurrence: None)
  Receive Date: 20070801
  Receipt Date: 20070713
  Transmission Date: 20080115
  Serious: Yes (Hospitalization)
  Sender: FDA-Public Use
  Company Number: ENTC2007-0197

PATIENT
  Age: 72 Year
  Sex: Female

DRUGS (4)
  1. STALEVO 100 [Suspect]
     Indication: PARKINSON'S DISEASE
     Dosage: 400 MG, ORAL
     Route: 048
     Dates: start: 20070514
  2. SIFROL [Concomitant]
  3. NACOM RETARD [Concomitant]
  4. PK MERZ [Concomitant]

REACTIONS (2)
  - ANAEMIA HAEMOLYTIC AUTOIMMUNE [None]
  - COOMBS TEST POSITIVE [None]
